FAERS Safety Report 15094232 (Version 1)
Quarter: 2018Q3

REPORT INFORMATION
  Report Type: Spontaneous
  Country: CZ (occurrence: CZ)
  Receive Date: 20180630
  Receipt Date: 20180630
  Transmission Date: 20181010
  Serious: Yes (Life-Threatening, Other)
  Sender: FDA-Public Use
  Company Number: CZ-TEVA-2018-CZ-915995

PATIENT
  Age: 54 Year
  Sex: Female
  Weight: 100 kg

DRUGS (1)
  1. ROSUVASTATIN TEVA PHARMA 10MG [Suspect]
     Active Substance: ROSUVASTATIN
     Indication: HYPERCHOLESTEROLAEMIA
     Dosage: 1TBL DAILY (IN THE EVENING)
     Route: 048
     Dates: start: 20180510, end: 20180512

REACTIONS (7)
  - Fear [Not Recovered/Not Resolved]
  - Mental disorder [Not Recovered/Not Resolved]
  - Dysphagia [Not Recovered/Not Resolved]
  - Fear of disease [Not Recovered/Not Resolved]
  - Tachypnoea [Not Recovered/Not Resolved]
  - Sensation of foreign body [Not Recovered/Not Resolved]
  - Nervousness [Not Recovered/Not Resolved]

NARRATIVE: CASE EVENT DATE: 20180510
